FAERS Safety Report 9504159 (Version 1)
Quarter: 2013Q3

REPORT INFORMATION
  Report Type: Spontaneous
  Country: IT (occurrence: IT)
  Receive Date: 20130906
  Receipt Date: 20130906
  Transmission Date: 20140515
  Serious: Yes (Hospitalization)
  Sender: FDA-Public Use
  Company Number: IT-TEVA-429453ISR

PATIENT
  Age: 13 Year
  Sex: Female
  Weight: 41 kg

DRUGS (1)
  1. VINCRISTINA TEVA [Suspect]
     Indication: ACUTE LYMPHOCYTIC LEUKAEMIA
     Dosage: 2 MILLIGRAM DAILY;
     Route: 040
     Dates: start: 20130405, end: 20130405

REACTIONS (6)
  - Escherichia sepsis [Recovered/Resolved]
  - Hypotension [Recovered/Resolved]
  - Pyrexia [Recovered/Resolved]
  - Neutrophilia [Recovered/Resolved]
  - Inflammation [Recovered/Resolved]
  - C-reactive protein increased [Recovered/Resolved]
